FAERS Safety Report 16514929 (Version 1)
Quarter: 2019Q3

REPORT INFORMATION
  Report Type: Spontaneous
  Country: DE (occurrence: DE)
  Receive Date: 20190702
  Receipt Date: 20190702
  Transmission Date: 20191004
  Serious: Yes (Other)
  Sender: FDA-Public Use
  Company Number: DE-GUERBET-DE-20190070

PATIENT
  Age: 10 Year
  Sex: Female
  Weight: 33 kg

DRUGS (1)
  1. DOTAREM [Suspect]
     Active Substance: GADOTERATE MEGLUMINE
     Indication: NUCLEAR MAGNETIC RESONANCE IMAGING
     Route: 065
     Dates: start: 20181120, end: 20181120

REACTIONS (15)
  - Hypoaesthesia [Unknown]
  - Arrhythmia [Unknown]
  - Palpitations [Unknown]
  - Hyperacusis [Unknown]
  - Muscle twitching [Unknown]
  - Paralysis [Unknown]
  - Pain [Unknown]
  - Product residue present [Unknown]
  - Paraesthesia [Unknown]
  - Disturbance in attention [Unknown]
  - Headache [Unknown]
  - Burning sensation [Unknown]
  - Malaise [Unknown]
  - Fatigue [Unknown]
  - Muscle spasms [Unknown]

NARRATIVE: CASE EVENT DATE: 20181120
